FAERS Safety Report 7258792-2 (Version None)
Quarter: 2011Q1

REPORT INFORMATION
  Report Type: 
  Country: None (occurrence: None)
  Receive Date: 20110129
  Receipt Date: 20100514
  Transmission Date: 20110831
  Serious: Yes (Hospitalization)
  Sender: FDA-Public Use
  Company Number: US-ABBOTT-10P-163-0645192-00

PATIENT
  Sex: Male

DRUGS (3)
  1. HUMIRA [Suspect]
     Indication: PITYRIASIS RUBRA PILARIS
     Dates: start: 20080901
  2. CARDIZEM [Concomitant]
     Indication: HYPERTENSION
  3. MIRTAZAPINE [Concomitant]
     Indication: DEPRESSION

REACTIONS (1)
  - STAPHYLOCOCCAL INFECTION [None]
